FAERS Safety Report 11520777 (Version 1)
Quarter: 2015Q3

REPORT INFORMATION
  Report Type: Spontaneous
  Country: US (occurrence: None)
  Receive Date: 20150917
  Receipt Date: 20150917
  Transmission Date: 20151125
  Serious: No
  Sender: FDA-Public Use
  Company Number: None

PATIENT
  Age: 33 Year
  Sex: Male
  Weight: 81.65 kg

DRUGS (1)
  1. PROPECIA [Suspect]
     Active Substance: FINASTERIDE
     Indication: ANDROGENETIC ALOPECIA
     Dates: end: 20150910

REACTIONS (6)
  - Infertility male [None]
  - Fatigue [None]
  - Libido decreased [None]
  - Erectile dysfunction [None]
  - Depression [None]
  - Semen analysis abnormal [None]

NARRATIVE: CASE EVENT DATE: 20150915
